FAERS Safety Report 6158067-9 (Version None)
Quarter: 2009Q2

REPORT INFORMATION
  Report Type: 
  Country: None (occurrence: None)
  Receive Date: 20090417
  Receipt Date: 20090407
  Transmission Date: 20091009
  Serious: Yes (Other)
  Sender: FDA-Public Use
  Company Number: FR-PFIZER INC-2009198519

PATIENT

DRUGS (3)
  1. ATARAX [Suspect]
     Dosage: 25 MG, SINGLE
     Route: 048
     Dates: start: 20090105, end: 20090105
  2. DIALGIREX [Concomitant]
     Dosage: 1 DF, SINGLE
     Dates: start: 20090105, end: 20090105
  3. DICLOFENAC SODIUM [Concomitant]
     Indication: TENDONITIS
     Dosage: UNK
     Route: 061

REACTIONS (1)
  - ECZEMA [None]
